FAERS Safety Report 10166858 (Version 1)
Quarter: 2014Q2

REPORT INFORMATION
  Report Type: Spontaneous
  Country: FR (occurrence: FR)
  Receive Date: 20140512
  Receipt Date: 20140512
  Transmission Date: 20141212
  Serious: Yes (Hospitalization)
  Sender: FDA-Public Use
  Company Number: FR-SA-2014SA055991

PATIENT
  Age: 66 Year
  Sex: Male

DRUGS (6)
  1. RIFAMPICIN [Suspect]
     Indication: ARTHRITIS BACTERIAL
     Route: 065
     Dates: start: 20140103, end: 20140127
  2. LOVENOX [Suspect]
     Indication: PRODUCT USED FOR UNKNOWN INDICATION
     Route: 065
     Dates: end: 20140116
  3. BACTRIM [Suspect]
     Indication: ARTHRITIS BACTERIAL
     Route: 065
     Dates: start: 20140103, end: 20140118
  4. VANCOMYCIN [Concomitant]
     Indication: ARTHRITIS BACTERIAL
     Dates: start: 20131231, end: 20140102
  5. GENTAMICIN [Concomitant]
     Indication: ARTHRITIS BACTERIAL
     Dates: start: 20131231, end: 20140102
  6. CEFOTAXIME [Concomitant]
     Indication: ARTHRITIS BACTERIAL
     Dates: start: 20131231, end: 20140102

REACTIONS (5)
  - Renal failure acute [Recovered/Resolved]
  - Hyponatraemia [Recovered/Resolved]
  - Hyperkalaemia [Recovered/Resolved]
  - Blood creatinine increased [Recovered/Resolved]
  - Blood urea increased [Recovered/Resolved]
